FAERS Safety Report 23719890 (Version 2)
Quarter: 2024Q2

REPORT INFORMATION
  Report Type: Spontaneous
  Country: PL (occurrence: PL)
  Receive Date: 20240408
  Receipt Date: 20240416
  Transmission Date: 20240715
  Serious: Yes (Hospitalization, Other)
  Sender: FDA-Public Use
  Company Number: PL-Orion Corporation ORION PHARMA-INPA2024-0003

PATIENT
  Age: 71 Year
  Sex: Female

DRUGS (3)
  1. INDAPAMIDE [Suspect]
     Active Substance: INDAPAMIDE
     Indication: Hypertension
     Dosage: UNK
     Route: 065
  2. VALSARTAN [Suspect]
     Active Substance: VALSARTAN
     Indication: Hypertension
     Dosage: UNK
     Route: 065
  3. NEBIVOLOL [Suspect]
     Active Substance: NEBIVOLOL
     Indication: Hypertension
     Dosage: UNK
     Route: 065

REACTIONS (6)
  - General physical health deterioration [Recovering/Resolving]
  - Cardiorenal syndrome [Recovering/Resolving]
  - Pulmonary oedema [Recovering/Resolving]
  - Hypertensive crisis [Unknown]
  - Renal artery stenosis [Recovering/Resolving]
  - Acute kidney injury [Recovering/Resolving]
